FAERS Safety Report 7374499-5 (Version None)
Quarter: 2011Q1

REPORT INFORMATION
  Report Type: 
  Country: None (occurrence: None)
  Receive Date: 20110325
  Receipt Date: 20110124
  Transmission Date: 20110831
  Serious: No
  Sender: FDA-Public Use
  Company Number: US-MYLANLABS-2011S1001723

PATIENT
  Age: 71 Year
  Sex: Male

DRUGS (2)
  1. FENTANYL-100 [Suspect]
     Indication: SPINAL CORD DISORDER
     Dosage: CHANGED Q72H
     Route: 062
     Dates: start: 20110114
  2. PERCOCET [Concomitant]
     Indication: BREAKTHROUGH PAIN

REACTIONS (3)
  - PAIN [None]
  - HYPOAESTHESIA [None]
  - DRUG INEFFECTIVE [None]
